FAERS Safety Report 25919049 (Version 1)
Quarter: 2025Q4

REPORT INFORMATION
  Report Type: Other
  Country: CA (occurrence: CA)
  Receive Date: 20251014
  Receipt Date: 20251014
  Transmission Date: 20260118
  Serious: Yes (Hospitalization)
  Sender: PFIZER
  Company Number: CA-PFIZER INC-202500200524

PATIENT
  Age: 17 Year
  Sex: Female

DRUGS (16)
  1. METHYLPREDNISOLONE ACETATE [Suspect]
     Active Substance: METHYLPREDNISOLONE ACETATE
     Indication: Haemophagocytic lymphohistiocytosis
     Dosage: 1.0 GRAM
     Route: 042
  2. METHYLPREDNISOLONE ACETATE [Suspect]
     Active Substance: METHYLPREDNISOLONE ACETATE
     Dosage: 1.0 MG/KG 1 EVERY 1 DAYS
     Route: 042
  3. METHYLPREDNISOLONE ACETATE [Suspect]
     Active Substance: METHYLPREDNISOLONE ACETATE
     Dosage: 30.0 MILLIGRAM 1 EVERY .5 DAYS
     Route: 042
  4. METHYLPREDNISOLONE ACETATE [Suspect]
     Active Substance: METHYLPREDNISOLONE ACETATE
     Dosage: 40.0 MILLIGRAM 1 EVERY 1 DAYS
     Route: 065
  5. METHYLPREDNISOLONE ACETATE [Suspect]
     Active Substance: METHYLPREDNISOLONE ACETATE
     Dosage: 60.0 MILLIGRAM 1 EVERY 1 DAYS
     Route: 065
  6. METHYLPREDNISOLONE ACETATE [Suspect]
     Active Substance: METHYLPREDNISOLONE ACETATE
     Dosage: UNK
     Route: 065
  7. LINEZOLID [Suspect]
     Active Substance: LINEZOLID
     Indication: Disseminated tuberculosis
     Dosage: UNK
     Route: 042
  8. ISONIAZID [Suspect]
     Active Substance: ISONIAZID
     Indication: Disseminated tuberculosis
     Dosage: 300.0 MILLIGRAM 1 EVERY 1 DAYS (DOSAGE FORM-NOT SPECIFIED)
     Route: 048
  9. ISONIAZID [Suspect]
     Active Substance: ISONIAZID
     Dosage: UNK
     Route: 050
  10. ISONIAZID [Suspect]
     Active Substance: ISONIAZID
     Dosage: 600.0 MILLIGRAM 1 EVERY 1 DAYS
     Route: 048
  11. MOXIFLOXACIN [Suspect]
     Active Substance: MOXIFLOXACIN
     Indication: Disseminated tuberculosis
     Dosage: UNK
     Route: 048
  12. MOXIFLOXACIN [Suspect]
     Active Substance: MOXIFLOXACIN
     Dosage: UNK (DOSAGE FORM-NOT SPECIFIED)
     Route: 042
  13. PREDNISONE [Suspect]
     Active Substance: PREDNISONE
     Indication: Haemophagocytic lymphohistiocytosis
     Dosage: UNK
     Route: 048
  14. PREDNISONE [Suspect]
     Active Substance: PREDNISONE
     Dosage: 40.0 MILLIGRAM 1 EVERY 1 DAYS (DOSAGE FORM-NOT SPECIFIED)
     Route: 048
  15. PREDNISONE [Suspect]
     Active Substance: PREDNISONE
     Dosage: UNK
     Route: 048
  16. PYRAZINAMIDE [Suspect]
     Active Substance: PYRAZINAMIDE
     Indication: Disseminated tuberculosis
     Dosage: UNK (DOSAGE FORM-NOT SPECIFIED)
     Route: 050

REACTIONS (7)
  - Disseminated tuberculosis [Recovered/Resolved]
  - Hypotension [Recovered/Resolved]
  - Immune reconstitution inflammatory syndrome [Recovered/Resolved]
  - Paraesthesia [Recovered/Resolved]
  - Tuberculosis [Recovered/Resolved]
  - Off label use [Unknown]
  - Off label use [Unknown]
